FAERS Safety Report 5465353-4 (Version None)
Quarter: 2007Q3

REPORT INFORMATION
  Report Type: 
  Country: None (occurrence: None)
  Receive Date: 20070924
  Receipt Date: 20070914
  Transmission Date: 20080115
  Serious: Yes (Hospitalization)
  Sender: FDA-Public Use
  Company Number: SG-ASTRAZENECA-2007AP05775

PATIENT
  Age: 19927 Day
  Sex: Female

DRUGS (9)
  1. IRESSA [Suspect]
     Indication: NON-SMALL CELL LUNG CANCER
     Route: 048
     Dates: start: 20070110
  2. BEE PROPOLIS [Concomitant]
     Indication: SUPPLEMENTATION THERAPY
     Route: 048
     Dates: start: 20070109
  3. SODIUM CHLORIDE  0.9% EYE DROPS [Concomitant]
     Indication: EYE DISORDER
     Route: 031
     Dates: start: 20070117, end: 20070123
  4. GUAIFENESIN [Concomitant]
     Indication: COUGH
     Route: 048
     Dates: start: 20070109
  5. LYCIUM [Concomitant]
     Indication: SUPPLEMENTATION THERAPY
     Route: 048
     Dates: start: 20070109, end: 20070117
  6. CODEINE PHOSPHATE [Concomitant]
     Indication: COUGH
     Route: 048
     Dates: start: 20060131, end: 20070201
  7. ACETYLCYSTEINE [Concomitant]
     Indication: COUGH
     Route: 048
     Dates: start: 20060131
  8. VENTOLIN [Concomitant]
     Indication: UPPER RESPIRATORY TRACT INFECTION
     Route: 055
     Dates: start: 20070423
  9. MEGESTROL ACETATE [Concomitant]
     Indication: APPETITE DISORDER
     Route: 048
     Dates: start: 20070625

REACTIONS (1)
  - DIZZINESS [None]
